FAERS Safety Report 24604524 (Version 1)
Quarter: 2024Q4

REPORT INFORMATION
  Report Type: Report from Study
  Country: IE (occurrence: IE)
  Receive Date: 20241111
  Receipt Date: 20241111
  Transmission Date: 20250115
  Serious: Yes (Other)
  Sender: ROCHE
  Company Number: IE-ROCHE-10000123290

PATIENT
  Sex: Male

DRUGS (1)
  1. OCREVUS [Suspect]
     Active Substance: OCRELIZUMAB
     Indication: Product used for unknown indication
     Route: 042

REACTIONS (5)
  - Fall [Unknown]
  - Skin abrasion [Recovering/Resolving]
  - Wound [Recovering/Resolving]
  - Off label use [Unknown]
  - Haemorrhage [Recovering/Resolving]
